FAERS Safety Report 9845153 (Version 2)
Quarter: 2014Q1

REPORT INFORMATION
  Report Type: Spontaneous
  Country: ZA (occurrence: ZA)
  Receive Date: 20140127
  Receipt Date: 20140220
  Transmission Date: 20141002
  Serious: Yes (Hospitalization, Other)
  Sender: FDA-Public Use
  Company Number: ZA-MALLINCKRODT-T201401073

PATIENT
  Age: 56 Year
  Sex: Male
  Weight: 134 kg

DRUGS (2)
  1. EXALGO [Suspect]
     Indication: PRODUCT USED FOR UNKNOWN INDICATION
     Dosage: 2 IN 1 DAY
     Route: 048
     Dates: start: 20131227
  2. MYPRODOL [Suspect]
     Indication: PRODUCT USED FOR UNKNOWN INDICATION
     Dosage: 2 CAPSULES AM AND 2 CAPSULES PM
     Route: 065
     Dates: start: 20131227

REACTIONS (2)
  - Pneumonia aspiration [Unknown]
  - Overdose [Unknown]
